FAERS Safety Report 6515344-7 (Version None)
Quarter: 2009Q4

REPORT INFORMATION
  Report Type: 
  Country: None (occurrence: None)
  Receive Date: 20091223
  Receipt Date: 20091215
  Transmission Date: 20100525
  Serious: Yes (Life-Threatening, Hospitalization)
  Sender: FDA-Public Use
  Company Number: ES-ROCHE-665621

PATIENT
  Sex: Female
  Weight: 50.9 kg

DRUGS (6)
  1. PEG-INTERFERON ALFA 2A (RO 25-8310) [Suspect]
     Dosage: REPORTED FORM: INJECTION, DATE OF LAST DOSE PRIOR TO SAE: 27 OCT 2009
     Route: 058
     Dates: start: 20081106
  2. RIBAVIRIN [Suspect]
     Dosage: REPORTED FORM: PILLS.  FREQUENCY: DAILY DATE OF LAST DOSE PRIOR TO SAE: 28 OCT 2009
     Route: 048
     Dates: start: 20081106
  3. TRUVADA [Concomitant]
     Dosage: REPORTED DRUG: TENOFOVIR 245 MG/EMTRICITABINE 200 MG, TDD: 1 PILL
     Dates: start: 20090421
  4. NEVIRAPINE [Concomitant]
     Dates: start: 20020909
  5. FILGRASTIM [Concomitant]
     Dosage: TDD: 300 MCG/WEEK
     Dates: start: 20090714, end: 20091029
  6. LORAZEPAM [Concomitant]
     Dates: start: 20081118

REACTIONS (2)
  - NON-SMALL CELL LUNG CANCER [None]
  - PNEUMONIA [None]
